FAERS Safety Report 4308421-2 (Version None)
Quarter: 2004Q1

REPORT INFORMATION
  Report Type: 
  Country: None (occurrence: None)
  Receive Date: 20040225
  Receipt Date: 20030107
  Transmission Date: 20041129
  Serious: Yes (Disabling)
  Sender: FDA-Public Use
  Company Number: WAES 0210USA00140

PATIENT
  Age: 65 Year
  Sex: Male
  Weight: 123.832 kg

DRUGS (5)
  1. ZOCOR [Suspect]
     Indication: HYPERLIPIDAEMIA
     Dosage: 10 MG/ DAILY/ PO
     Route: 048
     Dates: start: 20020528, end: 20020901
  2. ALLEGRA [Concomitant]
  3. MESTINON [Concomitant]
  4. CAPTOPRIL [Concomitant]
  5. LORAZEPAM [Concomitant]

REACTIONS (4)
  - ILL-DEFINED DISORDER [None]
  - MUSCLE CRAMP [None]
  - NAUSEA [None]
  - SWOLLEN TONGUE [None]
